FAERS Safety Report 5598000-1 (Version None)
Quarter: 2008Q1

REPORT INFORMATION
  Report Type: 
  Country: None (occurrence: None)
  Receive Date: 20080122
  Receipt Date: 20080116
  Transmission Date: 20080703
  Serious: Yes (Other)
  Sender: FDA-Public Use
  Company Number: BR-JNJFOC-20080104577

PATIENT
  Age: 14 Year
  Sex: Female
  Weight: 46 kg

DRUGS (2)
  1. HALDOL [Suspect]
     Indication: HALLUCINATION
     Route: 048
  2. HALDOL [Suspect]
     Indication: AGITATION
     Route: 048

REACTIONS (4)
  - DYSURIA [None]
  - NAUSEA [None]
  - SOMNOLENCE [None]
  - SPEECH DISORDER [None]
